FAERS Safety Report 8237111-9 (Version None)
Quarter: 2012Q1

REPORT INFORMATION
  Report Type: 
  Country: None (occurrence: None)
  Receive Date: 20120327
  Receipt Date: 20120319
  Transmission Date: 20120608
  Serious: Yes (Other)
  Sender: FDA-Public Use
  Company Number: FR-JNJFOC-20120309774

PATIENT
  Sex: Male
  Weight: 72 kg

DRUGS (5)
  1. DURAGESIC-100 [Suspect]
     Indication: PAIN
     Route: 062
  2. ALKERAN [Concomitant]
     Indication: MULTIPLE MYELOMA
     Route: 048
     Dates: end: 20110213
  3. LYRICA [Concomitant]
     Indication: NEUROPATHY PERIPHERAL
     Route: 048
  4. VELCADE [Suspect]
     Indication: MULTIPLE MYELOMA
     Route: 042
     Dates: end: 20110303
  5. VELCADE [Suspect]
     Route: 042
     Dates: start: 20100305

REACTIONS (2)
  - NEUROPATHY PERIPHERAL [None]
  - DIAPHRAGMATIC PARALYSIS [None]
